FAERS Safety Report 9695196 (Version 5)
Quarter: 2014Q1

REPORT INFORMATION
  Report Type: Spontaneous
  Country: GB (occurrence: GB)
  Receive Date: 20131119
  Receipt Date: 20140120
  Transmission Date: 20141002
  Serious: Yes (Life-Threatening, Disabling)
  Sender: FDA-Public Use
  Company Number: GB-NOVOPROD-392485

PATIENT
  Age: 60 Year
  Sex: Female
  Weight: 73 kg

DRUGS (8)
  1. NOVOMIX 30 PENFILL [Suspect]
     Indication: TYPE 1 DIABETES MELLITUS
     Dosage: 32 U, QD
     Route: 051
     Dates: start: 201305
  2. NOVOMIX 30 PENFILL [Suspect]
     Dosage: 32 U, QD
     Route: 051
     Dates: end: 20131108
  3. NOVOMIX 30 PENFILL [Suspect]
     Dosage: 32 U, QD
     Route: 051
  4. BISOPROL [Concomitant]
     Indication: PRODUCT USED FOR UNKNOWN INDICATION
     Dosage: 7.5 MG, QD
  5. FLUOXETINE [Concomitant]
     Indication: PRODUCT USED FOR UNKNOWN INDICATION
     Dosage: 20 MG, QD
  6. ASPIRIN [Concomitant]
     Indication: PRODUCT USED FOR UNKNOWN INDICATION
     Dosage: 75 MG, QD
  7. PRAVASTATIN [Concomitant]
     Indication: PRODUCT USED FOR UNKNOWN INDICATION
     Dosage: 10 MG, QD
  8. RAMIPRIL [Concomitant]
     Indication: PRODUCT USED FOR UNKNOWN INDICATION
     Dosage: 10 MG, QD

REACTIONS (14)
  - Cognitive disorder [Recovered/Resolved]
  - Activities of daily living impaired [Recovered/Resolved]
  - Hypoglycaemia [Recovered/Resolved]
  - Hyperglycaemia [Recovered/Resolved]
  - Aggression [Recovered/Resolved]
  - Malaise [Recovered/Resolved]
  - Drug ineffective [Recovered/Resolved]
  - Hyperinsulinaemia [Recovered/Resolved]
  - Product quality issue [Unknown]
  - Fatigue [Recovered/Resolved]
  - General physical health deterioration [Unknown]
  - Renal function test abnormal [Unknown]
  - Vomiting [Unknown]
  - Diabetes mellitus inadequate control [Unknown]
